FAERS Safety Report 9290955 (Version 1)
Quarter: 2013Q2

REPORT INFORMATION
  Report Type: Spontaneous
  Country: DK (occurrence: AU)
  Receive Date: 20130515
  Receipt Date: 20130515
  Transmission Date: 20140414
  Serious: Yes (Hospitalization)
  Sender: FDA-Public Use
  Company Number: AU-FRI-1000045148

PATIENT
  Age: 44 Year
  Sex: Male

DRUGS (20)
  1. CITALOPRAM [Suspect]
  2. AMITRIPTYLINE HYDROCHLORIDE [Suspect]
  3. FABRAZYME [Suspect]
     Dosage: 2.5 MG
     Route: 042
     Dates: start: 20050630
  4. FABRAZYME [Suspect]
     Dosage: 0.7143 MG
     Route: 042
     Dates: start: 20050729, end: 20050811
  5. FABRAZYME [Suspect]
     Dosage: (0.2 MG/KG)
     Route: 042
     Dates: start: 20080201
  6. FABRAZYME [Suspect]
     Dosage: 1.0714 MG
     Route: 042
  7. DILANTIN [Suspect]
  8. ENDONE [Suspect]
  9. FENTANYL [Suspect]
  10. FOLIC ACID [Suspect]
  11. IRBESARTAN [Suspect]
  12. LACTULOSE [Suspect]
  13. LASIX [Suspect]
  14. MAGMIN [Suspect]
  15. METOCLOPRAMINE HYDROCHLORIDE [Suspect]
  16. OMEPRAZOLE [Suspect]
  17. PARACETAMOL [Suspect]
  18. PERIACTIN [Suspect]
  19. SLOW-K [Suspect]
  20. VERAPAMIL HYDROCHLORIDE [Suspect]

REACTIONS (1)
  - Osteomyelitis [Unknown]
